FAERS Safety Report 25236343 (Version 1)
Quarter: 2025Q2

REPORT INFORMATION
  Report Type: Spontaneous
  Country: FR (occurrence: FR)
  Receive Date: 20250424
  Receipt Date: 20250424
  Transmission Date: 20250716
  Serious: Yes (Hospitalization, Disabling, Other)
  Sender: TEVA
  Company Number: FR-SA-SAC20240523000968

PATIENT
  Age: 60 Year
  Sex: Female

DRUGS (40)
  1. BROMAZEPAM [Suspect]
     Active Substance: BROMAZEPAM
     Indication: Product used for unknown indication
     Dosage: 6 MG (6 MG TABS DOUBLE-SCORED 1 TBLT/30) 1/4 TABLET MORNING, NOON AND EVENING, FOR 3 MONTHS.
     Route: 048
  2. BROMAZEPAM [Suspect]
     Active Substance: BROMAZEPAM
     Indication: Product used for unknown indication
     Dosage: 0.25 DF, TID, TIME INTERVAL: 0.33333333 DAYS: ONE QUARTER TABLET IN THE MORNING, AT TWELVE AND ONE
     Route: 048
  3. MIRTAZAPINE [Suspect]
     Active Substance: MIRTAZAPINE
     Indication: Product used for unknown indication
     Dosage: 2 DF, QD
     Route: 048
  4. MIRTAZAPINE [Suspect]
     Active Substance: MIRTAZAPINE
     Indication: Product used for unknown indication
     Dosage: ARROW GENERIQUES 15 MG FI/30, (2 TABLETS IN THE EVENING FOR 3 MONTHS)
     Route: 048
  5. ACETAMINOPHEN [Suspect]
     Active Substance: ACETAMINOPHEN
     Indication: Product used for unknown indication
     Route: 065
  6. LYRICA [Suspect]
     Active Substance: PREGABALIN
     Indication: Product used for unknown indication
     Dosage: 1 DF, BID
     Route: 048
  7. TRAMADOL HYDROCHLORIDE [Suspect]
     Active Substance: TRAMADOL HYDROCHLORIDE
     Indication: Complex regional pain syndrome
     Dosage: 1 DF, QD
     Route: 048
  8. DAFALGAN [Suspect]
     Active Substance: ACETAMINOPHEN
     Indication: Product used for unknown indication
     Dosage: 4 DF, QD
     Route: 048
  9. CHLORMADINONE ACETATE [Suspect]
     Active Substance: CHLORMADINONE ACETATE
     Indication: Menstruation irregular
     Dosage: 1 DF , QD FOR 21 DAYS
     Route: 065
     Dates: start: 20190715
  10. CHLORMADINONE ACETATE [Suspect]
     Active Substance: CHLORMADINONE ACETATE
     Indication: Menstruation irregular
     Dosage: 1 DF , QD FOR 21 DAYS/ONE TABLET PER DAY DURING 21 DAYS AND 7 DAYS OFF BY MONTHS
     Route: 065
     Dates: start: 20100317, end: 20100621
  11. CHLORMADINONE ACETATE [Suspect]
     Active Substance: CHLORMADINONE ACETATE
     Indication: Menstruation irregular
     Dosage: 1 DF , QD FOR 21 DAYS
     Route: 065
     Dates: start: 20190117
  12. CHLORMADINONE ACETATE [Suspect]
     Active Substance: CHLORMADINONE ACETATE
     Indication: Menstruation irregular
     Dosage: 1 DF , QD FOR 21 DAYS/MERCK , ONE TABLET PER DAY DURING 21 DAYS AND 7 DAYS OFF BY MONTHS
     Route: 065
     Dates: start: 20190806
  13. CHLORMADINONE ACETATE [Suspect]
     Active Substance: CHLORMADINONE ACETATE
     Indication: Menstruation irregular
     Dosage: ONE TABLET PER DAY DURING 21 DAYS AND 7 DAYS OFF BY MONTHS
     Route: 065
     Dates: start: 20191028
  14. CHLORMADINONE ACETATE [Suspect]
     Active Substance: CHLORMADINONE ACETATE
     Indication: Menstruation irregular
     Dosage: ONE TABLET PER DAY DURING 21 DAYS AND 7 DAYS OFF BY MONTHS
     Route: 065
     Dates: start: 20140505
  15. CHLORMADINONE ACETATE [Suspect]
     Active Substance: CHLORMADINONE ACETATE
     Indication: Menstruation irregular
     Route: 065
     Dates: start: 20170918
  16. NOMEGESTROL ACETATE [Suspect]
     Active Substance: NOMEGESTROL ACETATE
     Indication: Menstruation irregular
     Dosage: 1 DF, QD
     Route: 065
     Dates: start: 20181106, end: 20190117
  17. NOMEGESTROL ACETATE [Suspect]
     Active Substance: NOMEGESTROL ACETATE
     Indication: Menstruation irregular
     Dosage: 1 DF, QD
     Route: 065
     Dates: start: 20150403
  18. NOMEGESTROL ACETATE [Suspect]
     Active Substance: NOMEGESTROL ACETATE
     Indication: Menstruation irregular
     Dosage: 1 DF, QD
     Route: 065
     Dates: start: 20170307
  19. NOMEGESTROL ACETATE [Suspect]
     Active Substance: NOMEGESTROL ACETATE
     Indication: Menstruation irregular
     Dosage: 1 DF, QD
     Route: 065
     Dates: start: 20170921
  20. NOMEGESTROL ACETATE [Suspect]
     Active Substance: NOMEGESTROL ACETATE
     Indication: Menstruation irregular
     Dosage: 1 DF, QD
     Route: 065
     Dates: start: 20120514
  21. NOMEGESTROL ACETATE [Suspect]
     Active Substance: NOMEGESTROL ACETATE
     Indication: Menstruation irregular
     Dosage: 1 DF, QD
     Route: 065
     Dates: start: 20130517
  22. NOMEGESTROL ACETATE [Suspect]
     Active Substance: NOMEGESTROL ACETATE
     Indication: Menstruation irregular
     Dosage: 1 DF, QD
     Route: 065
     Dates: start: 20100621
  23. NOMEGESTROL ACETATE [Suspect]
     Active Substance: NOMEGESTROL ACETATE
     Indication: Menstruation irregular
     Dosage: 1 DF, QD
     Route: 065
     Dates: start: 20180329
  24. NOMEGESTROL ACETATE [Suspect]
     Active Substance: NOMEGESTROL ACETATE
     Indication: Menstruation irregular
     Dosage: 1 DF, QD
     Route: 065
     Dates: start: 20140505
  25. NOMEGESTROL ACETATE [Suspect]
     Active Substance: NOMEGESTROL ACETATE
     Indication: Menstruation irregular
     Dosage: 1 DF, QD
     Route: 065
     Dates: start: 20170613
  26. NOMEGESTROL ACETATE [Suspect]
     Active Substance: NOMEGESTROL ACETATE
     Indication: Menstruation irregular
     Dosage: 1 DF, QD
     Route: 065
     Dates: start: 20171211
  27. TIAPRIDE HYDROCHLORIDE [Suspect]
     Active Substance: TIAPRIDE HYDROCHLORIDE
     Indication: Product used for unknown indication
     Dosage: 100 MG (100 SCORED TABLET PLQ/20) 1 TABLET THE EVENING FOR 3 MONTHS
     Route: 048
  28. TIAPRIDE HYDROCHLORIDE [Suspect]
     Active Substance: TIAPRIDE HYDROCHLORIDE
     Indication: Product used for unknown indication
     Dosage: 150 MG, QD (150 MG CAPSULE LP ONCE-DAILY 5) TAKE 1 CAPSULE IN THE EVENING FOR 3 MONTHS)
     Route: 048
  29. IBUPROFEN [Suspect]
     Active Substance: IBUPROFEN
     Indication: Product used for unknown indication
     Dosage: MAKE 3 APPLICATIONS PER DAY
     Route: 003
  30. CETIRIZINE HYDROCHLORIDE [Suspect]
     Active Substance: CETIRIZINE HYDROCHLORIDE
     Indication: Product used for unknown indication
     Dosage: 1 DF, QD/ONCE IN THE EVENING
     Route: 065
  31. PREGABALIN [Suspect]
     Active Substance: PREGABALIN
     Indication: Product used for unknown indication
     Dosage: 1 DF, BID
     Route: 048
  32. LOCOID [Suspect]
     Active Substance: HYDROCORTISONE BUTYRATE
     Indication: Product used for unknown indication
     Route: 065
  33. PREGABALIN [Suspect]
     Active Substance: PREGABALIN
     Indication: Product used for unknown indication
     Route: 048
  34. CETIRIZINE HYDROCHLORIDE [Suspect]
     Active Substance: CETIRIZINE HYDROCHLORIDE
     Indication: Product used for unknown indication
     Route: 065
  35. CHLORMADINONE [Suspect]
     Active Substance: CHLORMADINONE
     Indication: Product used for unknown indication
     Route: 065
  36. GLYCERIN\MINERAL OIL\PETROLATUM [Suspect]
     Active Substance: GLYCERIN\MINERAL OIL\PETROLATUM
     Indication: Product used for unknown indication
     Route: 065
  37. SMECTA [Suspect]
     Active Substance: MONTMORILLONITE
     Indication: Product used for unknown indication
     Route: 065
  38. METEOSPASMYL (ALVERINE CITRATE\DIMETHICONE) [Suspect]
     Active Substance: ALVERINE CITRATE\DIMETHICONE
     Indication: Product used for unknown indication
     Route: 065
  39. METEOSPASMYL (ALVERINE CITRATE\DIMETHICONE) [Suspect]
     Active Substance: ALVERINE CITRATE\DIMETHICONE
     Indication: Product used for unknown indication
     Route: 065
  40. PROGESTERONE [Suspect]
     Active Substance: PROGESTERONE
     Indication: Product used for unknown indication
     Route: 065

REACTIONS (7)
  - Meningioma [Unknown]
  - Epistaxis [Not Recovered/Not Resolved]
  - Headache [Not Recovered/Not Resolved]
  - Asthenia [Not Recovered/Not Resolved]
  - Dizziness [Not Recovered/Not Resolved]
  - Pain in extremity [Not Recovered/Not Resolved]
  - Muscular weakness [Not Recovered/Not Resolved]

NARRATIVE: CASE EVENT DATE: 20211021
